FAERS Safety Report 18288122 (Version 1)
Quarter: 2020Q3

REPORT INFORMATION
  Report Type: Spontaneous
  Country: US (occurrence: US)
  Receive Date: 20200921
  Receipt Date: 20200921
  Transmission Date: 20201103
  Serious: Yes (Death)
  Sender: FDA-Public Use
  Company Number: US-SGP-000034

PATIENT
  Age: 47 Year

DRUGS (5)
  1. AZATHIOPRINE. [Concomitant]
     Active Substance: AZATHIOPRINE
     Indication: ADENOCARCINOMA GASTRIC
     Route: 065
  2. PEMBROLIZUMAB. [Concomitant]
     Active Substance: PEMBROLIZUMAB
     Indication: ADENOCARCINOMA GASTRIC
     Dosage: EVERY 3 WEEKS
     Route: 065
  3. BELATACEPT [Concomitant]
     Active Substance: BELATACEPT
     Indication: ADENOCARCINOMA GASTRIC
     Route: 065
  4. METHYLPREDNISOLONE. [Suspect]
     Active Substance: METHYLPREDNISOLONE
     Indication: ACUTE KIDNEY INJURY
     Dosage: 125 MG?5 DAYS
     Route: 065
  5. PREDNISONE. [Concomitant]
     Active Substance: PREDNISONE
     Indication: ADENOCARCINOMA GASTRIC
     Dosage: DAILY
     Route: 065

REACTIONS (3)
  - Product use in unapproved indication [Unknown]
  - Graft loss [Fatal]
  - Drug ineffective [Fatal]
